FAERS Safety Report 5413016-3 (Version None)
Quarter: 2007Q3

REPORT INFORMATION
  Report Type: 
  Country: None (occurrence: None)
  Receive Date: 20070809
  Receipt Date: 20070726
  Transmission Date: 20080115
  Serious: Yes (Life-Threatening, Disabling)
  Sender: FDA-Public Use
  Company Number: 2007P1000146

PATIENT
  Age: 30 Year
  Sex: Male

DRUGS (3)
  1. BUSULFAN (BUSULFAN) [Suspect]
     Indication: STEM CELL TRANSPLANT
     Dosage: IV
     Route: 042
     Dates: start: 20061123, end: 20061127
  2. CYCLOPHOSPHAMIDE [Suspect]
     Indication: STEM CELL TRANSPLANT
  3. METHOTREXATE [Suspect]
     Indication: STEM CELL TRANSPLANT

REACTIONS (11)
  - ANOREXIA [None]
  - CEREBELLAR ATAXIA [None]
  - CYTOMEGALOVIRUS ANTIGEN POSITIVE [None]
  - DIARRHOEA [None]
  - GASTROINTESTINAL CANDIDIASIS [None]
  - GRAFT VERSUS HOST DISEASE [None]
  - HERPES ZOSTER [None]
  - MALAISE [None]
  - SMALL INTESTINAL HAEMORRHAGE [None]
  - STOMATITIS [None]
  - VIRAL INFECTION [None]
